FAERS Safety Report 6762046-8 (Version None)
Quarter: 2010Q2

REPORT INFORMATION
  Report Type: 
  Country: None (occurrence: None)
  Receive Date: 20100609
  Receipt Date: 20100602
  Transmission Date: 20101027
  Serious: Yes (Disabling)
  Sender: FDA-Public Use
  Company Number: CA-ASTRAZENECA-2010SE25548

PATIENT
  Age: 33 Year
  Sex: Female
  Weight: 50 kg

DRUGS (1)
  1. ZOLADEX [Suspect]
     Route: 058

REACTIONS (6)
  - BEDRIDDEN [None]
  - BLOOD PRESSURE FLUCTUATION [None]
  - FEELING COLD [None]
  - HOT FLUSH [None]
  - VISUAL IMPAIRMENT [None]
  - VOMITING [None]
